FAERS Safety Report 11220347 (Version 1)
Quarter: 2015Q2

REPORT INFORMATION
  Report Type: Spontaneous
  Country: US (occurrence: None)
  Receive Date: 20150625
  Receipt Date: 20150625
  Transmission Date: 20150821
  Serious: No
  Sender: FDA-Public Use
  Company Number: None

PATIENT
  Age: 55 Year
  Sex: Female
  Weight: 86.18 kg

DRUGS (1)
  1. ESTRING [Suspect]
     Active Substance: ESTRADIOL
     Indication: MENOPAUSAL SYMPTOMS
     Dosage: INSERT 1 RING EVERY 3 MONTHS ?EVERY 3 MONTHS ?VAGINAL
     Route: 067
     Dates: start: 20150425, end: 20150510

REACTIONS (2)
  - Depression [None]
  - Vulvovaginal swelling [None]
